FAERS Safety Report 14636274 (Version 3)
Quarter: 2018Q3

REPORT INFORMATION
  Report Type: Report from Study
  Country: CA (occurrence: CA)
  Receive Date: 20180314
  Receipt Date: 20180706
  Transmission Date: 20181010
  Serious: Yes (Other)
  Sender: FDA-Public Use
  Company Number: CA-JNJFOC-20180211666

PATIENT
  Age: 40 Year
  Sex: Female
  Weight: 80 kg

DRUGS (2)
  1. REMICADE [Suspect]
     Active Substance: INFLIXIMAB
     Indication: CROHN^S DISEASE
     Dosage: STRENGTH = 100 MG
     Route: 042
     Dates: start: 20130828, end: 20180405
  2. REMICADE [Suspect]
     Active Substance: INFLIXIMAB
     Indication: CROHN^S DISEASE
     Route: 042
     Dates: start: 20180629

REACTIONS (12)
  - Intestinal perforation [Unknown]
  - Fistula [Not Recovered/Not Resolved]
  - Frequent bowel movements [Unknown]
  - Flushing [Unknown]
  - Nausea [Unknown]
  - Infusion related reaction [Unknown]
  - Haematochezia [Unknown]
  - Nasopharyngitis [Unknown]
  - Intestinal resection [Recovering/Resolving]
  - Vomiting [Unknown]
  - Underdose [Unknown]
  - Abdominal pain [Unknown]

NARRATIVE: CASE EVENT DATE: 20180303
